FAERS Safety Report 24815395 (Version 2)
Quarter: 2025Q1

REPORT INFORMATION
  Report Type: Spontaneous
  Country: CA (occurrence: CA)
  Receive Date: 20250107
  Receipt Date: 20250210
  Transmission Date: 20250408
  Serious: Yes (Death, Life-Threatening, Hospitalization, Disabling, Other)
  Sender: NOVARTIS
  Company Number: CA-002147023-NVSC2024CA248173

PATIENT
  Age: 44 Year
  Sex: Female
  Weight: 68 kg

DRUGS (522)
  1. DICLOFENAC DIETHYLAMINE [Suspect]
     Active Substance: DICLOFENAC DIETHYLAMINE
     Indication: Product used for unknown indication
     Route: 065
  2. DICLOFENAC SODIUM [Suspect]
     Active Substance: DICLOFENAC SODIUM
     Indication: Product used for unknown indication
     Dosage: 50 MG, QD, (1 EVERY 1 DAYS)
     Route: 065
  3. DICLOFENAC SODIUM [Suspect]
     Active Substance: DICLOFENAC SODIUM
     Route: 065
  4. DICLOFENAC SODIUM [Suspect]
     Active Substance: DICLOFENAC SODIUM
     Route: 065
  5. DICLOFENAC POTASSIUM [Suspect]
     Active Substance: DICLOFENAC POTASSIUM
     Indication: Product used for unknown indication
     Route: 065
  6. ADALIMUMAB [Suspect]
     Active Substance: ADALIMUMAB
     Indication: Rheumatoid arthritis
     Route: 058
  7. ADALIMUMAB [Suspect]
     Active Substance: ADALIMUMAB
     Route: 065
  8. ADALIMUMAB [Suspect]
     Active Substance: ADALIMUMAB
     Route: 058
  9. ADALIMUMAB [Suspect]
     Active Substance: ADALIMUMAB
     Route: 058
  10. COSENTYX [Suspect]
     Active Substance: SECUKINUMAB
     Indication: Psoriatic arthropathy
     Route: 065
  11. ERELZI [Suspect]
     Active Substance: ETANERCEPT-SZZS
     Indication: Rheumatoid arthritis
     Route: 065
  12. ERELZI [Suspect]
     Active Substance: ETANERCEPT-SZZS
     Route: 065
  13. ERELZI [Suspect]
     Active Substance: ETANERCEPT-SZZS
     Route: 065
  14. ERELZI [Suspect]
     Active Substance: ETANERCEPT-SZZS
     Route: 058
  15. ERELZI [Suspect]
     Active Substance: ETANERCEPT-SZZS
     Route: 065
  16. ERELZI [Suspect]
     Active Substance: ETANERCEPT-SZZS
     Route: 065
  17. ERELZI [Suspect]
     Active Substance: ETANERCEPT-SZZS
     Route: 065
  18. ERELZI [Suspect]
     Active Substance: ETANERCEPT-SZZS
     Route: 065
  19. ERELZI [Suspect]
     Active Substance: ETANERCEPT-SZZS
     Route: 065
  20. ERELZI [Suspect]
     Active Substance: ETANERCEPT-SZZS
     Route: 058
  21. ERELZI [Suspect]
     Active Substance: ETANERCEPT-SZZS
     Route: 058
  22. ERELZI [Suspect]
     Active Substance: ETANERCEPT-SZZS
     Route: 058
  23. LEFLUNOMIDE [Suspect]
     Active Substance: LEFLUNOMIDE
     Indication: Rheumatoid arthritis
     Dosage: 20 MG, QD
     Route: 065
  24. LEFLUNOMIDE [Suspect]
     Active Substance: LEFLUNOMIDE
     Route: 048
  25. LEFLUNOMIDE [Suspect]
     Active Substance: LEFLUNOMIDE
     Dosage: 20 MG, QD, (1 EVERY 1 DAYS)
     Route: 048
  26. LEFLUNOMIDE [Suspect]
     Active Substance: LEFLUNOMIDE
     Route: 065
  27. LEFLUNOMIDE [Suspect]
     Active Substance: LEFLUNOMIDE
     Route: 065
  28. RITUXIMAB [Suspect]
     Active Substance: RITUXIMAB
     Indication: Rheumatoid arthritis
     Route: 041
  29. RITUXIMAB [Suspect]
     Active Substance: RITUXIMAB
     Route: 042
  30. RITUXIMAB [Suspect]
     Active Substance: RITUXIMAB
     Route: 043
  31. RITUXIMAB [Suspect]
     Active Substance: RITUXIMAB
     Route: 042
  32. RITUXIMAB [Suspect]
     Active Substance: RITUXIMAB
     Route: 042
  33. RITUXIMAB [Suspect]
     Active Substance: RITUXIMAB
     Route: 042
  34. RITUXIMAB [Suspect]
     Active Substance: RITUXIMAB
     Route: 042
  35. RITUXIMAB [Suspect]
     Active Substance: RITUXIMAB
     Route: 041
  36. MYCOPHENOLATE MOFETIL [Suspect]
     Active Substance: MYCOPHENOLATE MOFETIL
     Indication: Rheumatoid arthritis
     Route: 065
  37. ACETAMINOPHEN [Suspect]
     Active Substance: ACETAMINOPHEN
     Indication: Rheumatoid arthritis
     Route: 065
  38. ACETAMINOPHEN [Suspect]
     Active Substance: ACETAMINOPHEN
     Route: 065
  39. ACETAMINOPHEN [Suspect]
     Active Substance: ACETAMINOPHEN
     Route: 065
  40. HYDROCORTISONE [Suspect]
     Active Substance: HYDROCORTISONE
     Indication: Rheumatoid arthritis
     Route: 050
  41. HYDROCORTISONE [Suspect]
     Active Substance: HYDROCORTISONE
     Route: 058
  42. HYDROCORTISONE [Suspect]
     Active Substance: HYDROCORTISONE
     Route: 048
  43. HYDROCORTISONE [Suspect]
     Active Substance: HYDROCORTISONE
     Route: 050
  44. HYDROCORTISONE [Suspect]
     Active Substance: HYDROCORTISONE
     Route: 003
  45. HYDROCORTISONE [Suspect]
     Active Substance: HYDROCORTISONE
     Route: 065
  46. HYDROCORTISONE [Suspect]
     Active Substance: HYDROCORTISONE
     Route: 058
  47. HYDROCORTISONE [Suspect]
     Active Substance: HYDROCORTISONE
     Route: 003
  48. HYDROCORTISONE [Suspect]
     Active Substance: HYDROCORTISONE
     Route: 058
  49. VITAMIN C [Suspect]
     Active Substance: ASCORBIC ACID
     Indication: Product used for unknown indication
     Route: 065
  50. ACTEMRA [Suspect]
     Active Substance: TOCILIZUMAB
     Indication: Rheumatoid arthritis
     Route: 050
  51. ACTEMRA [Suspect]
     Active Substance: TOCILIZUMAB
     Route: 058
  52. ACTEMRA [Suspect]
     Active Substance: TOCILIZUMAB
     Route: 042
  53. ACTEMRA [Suspect]
     Active Substance: TOCILIZUMAB
     Route: 048
  54. ACTEMRA [Suspect]
     Active Substance: TOCILIZUMAB
     Route: 065
  55. ACTEMRA [Suspect]
     Active Substance: TOCILIZUMAB
     Route: 048
  56. ACTEMRA [Suspect]
     Active Substance: TOCILIZUMAB
     Route: 042
  57. ACTEMRA [Suspect]
     Active Substance: TOCILIZUMAB
     Route: 058
  58. ACTEMRA [Suspect]
     Active Substance: TOCILIZUMAB
     Route: 042
  59. ACTEMRA [Suspect]
     Active Substance: TOCILIZUMAB
     Route: 058
  60. ACTEMRA [Suspect]
     Active Substance: TOCILIZUMAB
     Route: 065
  61. ACTEMRA [Suspect]
     Active Substance: TOCILIZUMAB
     Route: 048
  62. ACTEMRA [Suspect]
     Active Substance: TOCILIZUMAB
     Route: 065
  63. ACTEMRA [Suspect]
     Active Substance: TOCILIZUMAB
     Route: 042
  64. ACTEMRA [Suspect]
     Active Substance: TOCILIZUMAB
     Route: 048
  65. ACTEMRA [Suspect]
     Active Substance: TOCILIZUMAB
     Route: 042
  66. ACTEMRA [Suspect]
     Active Substance: TOCILIZUMAB
     Route: 058
  67. DICLOFENAC POTASSIUM [Suspect]
     Active Substance: DICLOFENAC POTASSIUM
     Indication: Product used for unknown indication
     Route: 065
  68. LEFLUNOMIDE [Suspect]
     Active Substance: LEFLUNOMIDE
     Indication: Rheumatoid arthritis
     Route: 048
  69. LEFLUNOMIDE [Suspect]
     Active Substance: LEFLUNOMIDE
     Route: 065
  70. LEFLUNOMIDE [Suspect]
     Active Substance: LEFLUNOMIDE
     Route: 065
  71. LEFLUNOMIDE [Suspect]
     Active Substance: LEFLUNOMIDE
     Route: 065
  72. LEFLUNOMIDE [Suspect]
     Active Substance: LEFLUNOMIDE
     Route: 048
  73. APREMILAST [Suspect]
     Active Substance: APREMILAST
     Indication: Product used for unknown indication
     Route: 065
  74. APREMILAST [Suspect]
     Active Substance: APREMILAST
     Route: 065
  75. APREMILAST [Suspect]
     Active Substance: APREMILAST
     Route: 065
  76. APREMILAST [Suspect]
     Active Substance: APREMILAST
     Route: 065
  77. APREMILAST [Suspect]
     Active Substance: APREMILAST
     Route: 065
  78. APREMILAST [Suspect]
     Active Substance: APREMILAST
     Route: 048
  79. APREMILAST [Suspect]
     Active Substance: APREMILAST
     Route: 042
  80. APREMILAST [Suspect]
     Active Substance: APREMILAST
     Route: 042
  81. APREMILAST [Suspect]
     Active Substance: APREMILAST
     Route: 048
  82. APREPITANT [Suspect]
     Active Substance: APREPITANT
     Indication: Product used for unknown indication
     Route: 042
  83. APREPITANT [Suspect]
     Active Substance: APREPITANT
     Route: 042
  84. ARAVA [Suspect]
     Active Substance: LEFLUNOMIDE
     Indication: Rheumatoid arthritis
     Route: 065
  85. ARAVA [Suspect]
     Active Substance: LEFLUNOMIDE
     Route: 048
  86. ARAVA [Suspect]
     Active Substance: LEFLUNOMIDE
     Route: 048
  87. ARAVA [Suspect]
     Active Substance: LEFLUNOMIDE
     Route: 065
  88. ARAVA [Suspect]
     Active Substance: LEFLUNOMIDE
     Route: 065
  89. ARAVA [Suspect]
     Active Substance: LEFLUNOMIDE
     Route: 048
  90. ASACOL [Suspect]
     Active Substance: MESALAMINE
     Indication: Product used for unknown indication
     Route: 065
  91. CELEBREX [Suspect]
     Active Substance: CELECOXIB
     Indication: Product used for unknown indication
     Dosage: 2 DOSAGE FORM, QD
     Route: 048
  92. CELEBREX [Suspect]
     Active Substance: CELECOXIB
     Route: 065
  93. CERTOLIZUMAB PEGOL [Suspect]
     Active Substance: CERTOLIZUMAB PEGOL
     Indication: Rheumatoid arthritis
     Route: 058
  94. CETIRIZINE HYDROCHLORIDE [Suspect]
     Active Substance: CETIRIZINE HYDROCHLORIDE
     Indication: Rheumatoid arthritis
     Dosage: 10 MG, QD
     Route: 065
  95. CETIRIZINE HYDROCHLORIDE [Suspect]
     Active Substance: CETIRIZINE HYDROCHLORIDE
     Dosage: 10 MG, QD
     Route: 048
  96. CETIRIZINE HYDROCHLORIDE [Suspect]
     Active Substance: CETIRIZINE HYDROCHLORIDE
     Route: 065
  97. CETIRIZINE HYDROCHLORIDE [Suspect]
     Active Substance: CETIRIZINE HYDROCHLORIDE
     Route: 065
  98. CETIRIZINE HYDROCHLORIDE [Suspect]
     Active Substance: CETIRIZINE HYDROCHLORIDE
     Route: 065
  99. CETIRIZINE HYDROCHLORIDE [Suspect]
     Active Substance: CETIRIZINE HYDROCHLORIDE
     Route: 065
  100. CETIRIZINE HYDROCHLORIDE [Suspect]
     Active Substance: CETIRIZINE HYDROCHLORIDE
     Route: 065
  101. CETIRIZINE HYDROCHLORIDE [Suspect]
     Active Substance: CETIRIZINE HYDROCHLORIDE
     Dosage: 10 MG, QD, (1 EVERY 1 DAYS)
     Route: 048
  102. CETIRIZINE HYDROCHLORIDE [Suspect]
     Active Substance: CETIRIZINE HYDROCHLORIDE
     Route: 065
  103. CETIRIZINE HYDROCHLORIDE [Suspect]
     Active Substance: CETIRIZINE HYDROCHLORIDE
     Route: 048
  104. CETIRIZINE HYDROCHLORIDE [Suspect]
     Active Substance: CETIRIZINE HYDROCHLORIDE
     Route: 065
  105. CETIRIZINE HYDROCHLORIDE [Suspect]
     Active Substance: CETIRIZINE HYDROCHLORIDE
     Route: 065
  106. CETIRIZINE HYDROCHLORIDE [Suspect]
     Active Substance: CETIRIZINE HYDROCHLORIDE
     Route: 065
  107. CETIRIZINE HYDROCHLORIDE\PSEUDOEPHEDRINE HYDROCHLORIDE [Suspect]
     Active Substance: CETIRIZINE HYDROCHLORIDE\PSEUDOEPHEDRINE HYDROCHLORIDE
     Indication: Rheumatoid arthritis
     Route: 065
  108. CETIRIZINE HYDROCHLORIDE AND PSEUDOEPHEDRINE HYDROCHLORIDE [Suspect]
     Active Substance: CETIRIZINE HYDROCHLORIDE\PSEUDOEPHEDRINE HYDROCHLORIDE
     Indication: Rheumatoid arthritis
     Route: 065
  109. CIMZIA [Suspect]
     Active Substance: CERTOLIZUMAB PEGOL
     Indication: Rheumatoid arthritis
     Route: 058
  110. CIMZIA [Suspect]
     Active Substance: CERTOLIZUMAB PEGOL
     Route: 058
  111. CIMZIA [Suspect]
     Active Substance: CERTOLIZUMAB PEGOL
     Route: 065
  112. CIMZIA [Suspect]
     Active Substance: CERTOLIZUMAB PEGOL
     Route: 065
  113. CIMZIA [Suspect]
     Active Substance: CERTOLIZUMAB PEGOL
     Route: 058
  114. CODEINE [Suspect]
     Active Substance: CODEINE
     Indication: Product used for unknown indication
     Route: 065
  115. HYDROCORTISONE ACETATE [Suspect]
     Active Substance: HYDROCORTISONE ACETATE
     Indication: Rheumatoid arthritis
     Route: 058
  116. HYDROCORTISONE ACETATE [Suspect]
     Active Substance: HYDROCORTISONE ACETATE
     Route: 003
  117. HYDROCORTISONE ACETATE [Suspect]
     Active Substance: HYDROCORTISONE ACETATE
     Route: 048
  118. HYDROCORTISONE ACETATE [Suspect]
     Active Substance: HYDROCORTISONE ACETATE
     Route: 065
  119. CORTISONE [Suspect]
     Active Substance: CORTISONE
     Indication: Rheumatoid arthritis
     Route: 065
  120. CORTISONE [Suspect]
     Active Substance: CORTISONE
     Route: 050
  121. CORTISONE [Suspect]
     Active Substance: CORTISONE
     Route: 048
  122. CORTISONE [Suspect]
     Active Substance: CORTISONE
     Route: 065
  123. CORTISONE [Suspect]
     Active Substance: CORTISONE
     Route: 065
  124. CORTISONE [Suspect]
     Active Substance: CORTISONE
     Route: 065
  125. CORTISONE [Suspect]
     Active Substance: CORTISONE
     Route: 048
  126. CORTISONE [Suspect]
     Active Substance: CORTISONE
     Route: 065
  127. CORTISONE [Suspect]
     Active Substance: CORTISONE
     Route: 065
  128. CORTISONE [Suspect]
     Active Substance: CORTISONE
     Route: 048
  129. CORTISONE [Suspect]
     Active Substance: CORTISONE
     Route: 065
  130. CORTISONE [Suspect]
     Active Substance: CORTISONE
     Indication: Rheumatoid arthritis
     Route: 048
  131. CORTISONE [Suspect]
     Active Substance: CORTISONE
     Route: 003
  132. CORTISONE [Suspect]
     Active Substance: CORTISONE
     Route: 058
  133. CORTISONE [Suspect]
     Active Substance: CORTISONE
     Route: 065
  134. DESOXIMETASONE [Suspect]
     Active Substance: DESOXIMETASONE
     Indication: Rheumatoid arthritis
     Dosage: 25 MG, QW, (1 EVERY 1 WEEKS)
     Route: 065
  135. DESOXIMETASONE [Suspect]
     Active Substance: DESOXIMETASONE
     Dosage: 25 MG, QW
     Route: 048
  136. DESOXIMETASONE [Suspect]
     Active Substance: DESOXIMETASONE
     Dosage: 25 MG, QW
     Route: 003
  137. DESOXIMETASONE [Suspect]
     Active Substance: DESOXIMETASONE
     Dosage: 25 MG, QW
     Route: 058
  138. DESOXIMETASONE [Suspect]
     Active Substance: DESOXIMETASONE
     Dosage: 25 MG, QW (TOPICAL)
     Route: 050
  139. DESOXIMETASONE [Suspect]
     Active Substance: DESOXIMETASONE
     Route: 065
  140. DESOXIMETASONE [Suspect]
     Active Substance: DESOXIMETASONE
     Route: 065
  141. DESOXIMETASONE [Suspect]
     Active Substance: DESOXIMETASONE
     Route: 065
  142. DESOXIMETASONE [Suspect]
     Active Substance: DESOXIMETASONE
     Route: 065
  143. DESOXIMETASONE [Suspect]
     Active Substance: DESOXIMETASONE
     Route: 065
  144. DESOXIMETASONE [Suspect]
     Active Substance: DESOXIMETASONE
     Route: 065
  145. DESOXIMETASONE [Suspect]
     Active Substance: DESOXIMETASONE
     Route: 003
  146. DESOXIMETASONE [Suspect]
     Active Substance: DESOXIMETASONE
     Route: 003
  147. DESOXIMETASONE [Suspect]
     Active Substance: DESOXIMETASONE
     Route: 003
  148. DESOXIMETASONE [Suspect]
     Active Substance: DESOXIMETASONE
     Route: 048
  149. DESOXIMETASONE [Suspect]
     Active Substance: DESOXIMETASONE
     Route: 048
  150. DESOXIMETASONE [Suspect]
     Active Substance: DESOXIMETASONE
     Route: 048
  151. DESOXIMETASONE [Suspect]
     Active Substance: DESOXIMETASONE
     Route: 048
  152. DESOXIMETASONE [Suspect]
     Active Substance: DESOXIMETASONE
     Route: 048
  153. DESOXIMETASONE [Suspect]
     Active Substance: DESOXIMETASONE
     Route: 048
  154. DESOXIMETASONE [Suspect]
     Active Substance: DESOXIMETASONE
     Route: 048
  155. DESOXIMETASONE [Suspect]
     Active Substance: DESOXIMETASONE
     Route: 048
  156. DESOXIMETASONE [Suspect]
     Active Substance: DESOXIMETASONE
     Route: 048
  157. DESOXIMETASONE [Suspect]
     Active Substance: DESOXIMETASONE
     Route: 058
  158. DESOXIMETASONE [Suspect]
     Active Substance: DESOXIMETASONE
     Route: 058
  159. DESOXIMETASONE [Suspect]
     Active Substance: DESOXIMETASONE
     Route: 058
  160. DESOXIMETASONE [Suspect]
     Active Substance: DESOXIMETASONE
     Route: 058
  161. DESOXIMETASONE [Suspect]
     Active Substance: DESOXIMETASONE
     Route: 058
  162. DESOXIMETASONE [Suspect]
     Active Substance: DESOXIMETASONE
     Route: 065
  163. DESOXIMETASONE [Suspect]
     Active Substance: DESOXIMETASONE
     Route: 065
  164. DESOXIMETASONE [Suspect]
     Active Substance: DESOXIMETASONE
     Route: 065
  165. DESOXIMETASONE [Suspect]
     Active Substance: DESOXIMETASONE
     Route: 065
  166. DILTIAZEM HYDROCHLORIDE [Suspect]
     Active Substance: DILTIAZEM HYDROCHLORIDE
     Indication: Product used for unknown indication
     Route: 065
  167. DILTIAZEM HYDROCHLORIDE [Suspect]
     Active Substance: DILTIAZEM HYDROCHLORIDE
     Route: 042
  168. DOXYCYCLINE [Suspect]
     Active Substance: DOXYCYCLINE
     Indication: Product used for unknown indication
     Route: 065
  169. ENBREL [Suspect]
     Active Substance: ETANERCEPT
     Indication: Rheumatoid arthritis
     Dosage: 50 MG, QW
     Route: 065
  170. ENBREL [Suspect]
     Active Substance: ETANERCEPT
     Dosage: UNK, QW, (1 EVERY 1 WEEKS)
     Route: 065
  171. ENBREL [Suspect]
     Active Substance: ETANERCEPT
     Route: 065
  172. ENBREL [Suspect]
     Active Substance: ETANERCEPT
     Route: 065
  173. ENBREL [Suspect]
     Active Substance: ETANERCEPT
     Route: 058
  174. ENBREL [Suspect]
     Active Substance: ETANERCEPT
     Route: 065
  175. ENBREL [Suspect]
     Active Substance: ETANERCEPT
     Route: 065
  176. ENBREL [Suspect]
     Active Substance: ETANERCEPT
     Route: 065
  177. ENBREL [Suspect]
     Active Substance: ETANERCEPT
     Route: 065
  178. ENBREL [Suspect]
     Active Substance: ETANERCEPT
     Route: 065
  179. ENBREL [Suspect]
     Active Substance: ETANERCEPT
     Route: 058
  180. ENBREL [Suspect]
     Active Substance: ETANERCEPT
     Route: 058
  181. ENBREL [Suspect]
     Active Substance: ETANERCEPT
     Dosage: 50 MG, QW, (1 EVERY 1 WEEKS)
     Route: 058
  182. ENBREL [Suspect]
     Active Substance: ETANERCEPT
     Dosage: 50 MG, QW, (1 EVERY 1 WEEKS)
     Route: 058
  183. ENBREL [Suspect]
     Active Substance: ETANERCEPT
     Dosage: 50 MG, QW, (1 EVERY 1 WEEKS)
     Route: 058
  184. ENBREL [Suspect]
     Active Substance: ETANERCEPT
     Dosage: 50 MG, QW, (1 EVERY 1 WEEKS)
     Route: 058
  185. ENBREL [Suspect]
     Active Substance: ETANERCEPT
     Dosage: 50 MG, QW, (1 EVERY 1 WEEKS)
     Route: 058
  186. ENBREL [Suspect]
     Active Substance: ETANERCEPT
     Route: 058
  187. ENBREL [Suspect]
     Active Substance: ETANERCEPT
     Route: 048
  188. ENTYVIO [Suspect]
     Active Substance: VEDOLIZUMAB
     Indication: Product used for unknown indication
     Route: 065
  189. ENTYVIO [Suspect]
     Active Substance: VEDOLIZUMAB
     Route: 065
  190. ENTYVIO [Suspect]
     Active Substance: VEDOLIZUMAB
     Route: 065
  191. FLUMETHASONE [Suspect]
     Active Substance: FLUMETHASONE
     Indication: Rheumatoid arthritis
     Route: 065
  192. FLUMETHASONE [Suspect]
     Active Substance: FLUMETHASONE
     Route: 058
  193. FLUMETHASONE PIVALATE [Suspect]
     Active Substance: FLUMETHASONE PIVALATE
     Indication: Rheumatoid arthritis
     Route: 065
  194. FLUMETHASONE PIVALATE [Suspect]
     Active Substance: FLUMETHASONE PIVALATE
     Route: 058
  195. FLUMETHASONE PIVALATE [Suspect]
     Active Substance: FLUMETHASONE PIVALATE
     Route: 003
  196. FOLIC ACID [Suspect]
     Active Substance: FOLIC ACID
     Indication: Rheumatoid arthritis
     Route: 065
  197. FOLIC ACID [Suspect]
     Active Substance: FOLIC ACID
     Route: 065
  198. FOLIC ACID [Suspect]
     Active Substance: FOLIC ACID
     Route: 065
  199. FOLIC ACID [Suspect]
     Active Substance: FOLIC ACID
     Route: 065
  200. FOLIC ACID [Suspect]
     Active Substance: FOLIC ACID
     Route: 065
  201. FOLIC ACID [Suspect]
     Active Substance: FOLIC ACID
     Route: 065
  202. FOLIC ACID [Suspect]
     Active Substance: FOLIC ACID
     Route: 048
  203. FOLIC ACID [Suspect]
     Active Substance: FOLIC ACID
     Route: 058
  204. FOLIC ACID [Suspect]
     Active Substance: FOLIC ACID
     Route: 065
  205. FOLIC ACID [Suspect]
     Active Substance: FOLIC ACID
     Route: 065
  206. FOLIC ACID [Suspect]
     Active Substance: FOLIC ACID
     Route: 065
  207. FOLIC ACID [Suspect]
     Active Substance: FOLIC ACID
     Route: 065
  208. FOLIC ACID [Suspect]
     Active Substance: FOLIC ACID
     Route: 065
  209. FOLIC ACID [Suspect]
     Active Substance: FOLIC ACID
     Route: 065
  210. FOLIC ACID [Suspect]
     Active Substance: FOLIC ACID
     Route: 048
  211. FOLIC ACID [Suspect]
     Active Substance: FOLIC ACID
     Route: 048
  212. FOLIC ACID [Suspect]
     Active Substance: FOLIC ACID
     Route: 065
  213. FOSAMAX [Suspect]
     Active Substance: ALENDRONATE SODIUM
     Indication: Rheumatoid arthritis
     Route: 065
  214. FOSAMAX [Suspect]
     Active Substance: ALENDRONATE SODIUM
     Route: 065
  215. FOSAMAX [Suspect]
     Active Substance: ALENDRONATE SODIUM
     Route: 048
  216. FOSAMAX [Suspect]
     Active Substance: ALENDRONATE SODIUM
     Route: 065
  217. FOSAMAX [Suspect]
     Active Substance: ALENDRONATE SODIUM
     Route: 058
  218. FOSAMAX [Suspect]
     Active Substance: ALENDRONATE SODIUM
     Route: 065
  219. FOSAMAX [Suspect]
     Active Substance: ALENDRONATE SODIUM
     Route: 065
  220. FOSAMAX [Suspect]
     Active Substance: ALENDRONATE SODIUM
     Route: 065
  221. FOSAMAX [Suspect]
     Active Substance: ALENDRONATE SODIUM
     Route: 048
  222. FOSAMAX [Suspect]
     Active Substance: ALENDRONATE SODIUM
     Route: 005
  223. FOSAMAX [Suspect]
     Active Substance: ALENDRONATE SODIUM
     Route: 048
  224. FOSAMAX [Suspect]
     Active Substance: ALENDRONATE SODIUM
     Route: 048
  225. GOLIMUMAB [Suspect]
     Active Substance: GOLIMUMAB
     Indication: Rheumatoid arthritis
     Route: 065
  226. GOLIMUMAB [Suspect]
     Active Substance: GOLIMUMAB
     Indication: Prostatic specific antigen
     Route: 058
  227. HUMIRA [Suspect]
     Active Substance: ADALIMUMAB
     Indication: Rheumatoid arthritis
     Route: 065
  228. HUMIRA [Suspect]
     Active Substance: ADALIMUMAB
     Route: 065
  229. HUMIRA [Suspect]
     Active Substance: ADALIMUMAB
     Route: 065
  230. HUMIRA [Suspect]
     Active Substance: ADALIMUMAB
     Route: 065
  231. HUMIRA [Suspect]
     Active Substance: ADALIMUMAB
     Route: 065
  232. HUMIRA [Suspect]
     Active Substance: ADALIMUMAB
     Route: 058
  233. HUMIRA [Suspect]
     Active Substance: ADALIMUMAB
     Route: 058
  234. HUMIRA [Suspect]
     Active Substance: ADALIMUMAB
     Route: 058
  235. HUMIRA [Suspect]
     Active Substance: ADALIMUMAB
     Route: 058
  236. HUMIRA [Suspect]
     Active Substance: ADALIMUMAB
     Route: 058
  237. HUMIRA [Suspect]
     Active Substance: ADALIMUMAB
     Route: 058
  238. HYDROXYCHLOROQUINE [Suspect]
     Active Substance: HYDROXYCHLOROQUINE
     Indication: Rheumatoid arthritis
     Dosage: 400 MG, QD, (1 EVERY 1 DAYS)
     Route: 048
  239. HYDROXYCHLOROQUINE [Suspect]
     Active Substance: HYDROXYCHLOROQUINE
     Route: 048
  240. HYDROXYCHLOROQUINE [Suspect]
     Active Substance: HYDROXYCHLOROQUINE
     Route: 065
  241. HYDROXYCHLOROQUINE [Suspect]
     Active Substance: HYDROXYCHLOROQUINE
     Route: 005
  242. HYDROXYCHLOROQUINE [Suspect]
     Active Substance: HYDROXYCHLOROQUINE
     Route: 065
  243. HYDROXYCHLOROQUINE [Suspect]
     Active Substance: HYDROXYCHLOROQUINE
     Route: 048
  244. HYDROXYCHLOROQUINE [Suspect]
     Active Substance: HYDROXYCHLOROQUINE
     Dosage: 400 MG, QD, (1 EVERY 1 DAYS)
     Route: 048
  245. HYDROXYCHLOROQUINE [Suspect]
     Active Substance: HYDROXYCHLOROQUINE
     Dosage: 400 MG, QD, (1 EVERY 1 DAYS)
     Route: 065
  246. HYDROXYCHLOROQUINE [Suspect]
     Active Substance: HYDROXYCHLOROQUINE
     Dosage: UNK UNK, QD, (1 EVERY 1 DAYS)
     Route: 048
  247. HYDROXYCHLOROQUINE [Suspect]
     Active Substance: HYDROXYCHLOROQUINE
     Route: 048
  248. HYDROXYCHLOROQUINE [Suspect]
     Active Substance: HYDROXYCHLOROQUINE
     Route: 048
  249. HYDROXYCHLOROQUINE [Suspect]
     Active Substance: HYDROXYCHLOROQUINE
     Route: 005
  250. HYDROXYCHLOROQUINE [Suspect]
     Active Substance: HYDROXYCHLOROQUINE
     Route: 065
  251. HYDROXYCHLOROQUINE [Suspect]
     Active Substance: HYDROXYCHLOROQUINE
     Route: 065
  252. HYDROXYCHLOROQUINE [Suspect]
     Active Substance: HYDROXYCHLOROQUINE
     Route: 065
  253. HYDROXYCHLOROQUINE [Suspect]
     Active Substance: HYDROXYCHLOROQUINE
     Route: 065
  254. HYDROXYCHLOROQUINE [Suspect]
     Active Substance: HYDROXYCHLOROQUINE
     Route: 065
  255. HYDROXYCHLOROQUINE [Suspect]
     Active Substance: HYDROXYCHLOROQUINE
     Route: 065
  256. HYDROXYCHLOROQUINE [Suspect]
     Active Substance: HYDROXYCHLOROQUINE
     Route: 065
  257. HYDROXYCHLOROQUINE [Suspect]
     Active Substance: HYDROXYCHLOROQUINE
     Dosage: 400 MG, QD, (1 EVERY 1 DAYS)
     Route: 048
  258. HYDROXYCHLOROQUINE SULFATE [Suspect]
     Active Substance: HYDROXYCHLOROQUINE SULFATE
     Indication: Rheumatoid arthritis
     Dosage: 400 MG, QD, (1 EVERY 1 DAYS)
     Route: 048
  259. HYDROXYCHLOROQUINE SULFATE [Suspect]
     Active Substance: HYDROXYCHLOROQUINE SULFATE
     Dosage: 400 MG, QD, (1 EVERY 1 DAYS)
     Route: 066
  260. HYDROXYCHLOROQUINE SULFATE [Suspect]
     Active Substance: HYDROXYCHLOROQUINE SULFATE
     Dosage: 400 MG, QD, (1 EVERY 1 DAYS)
     Route: 058
  261. HYDROXYCHLOROQUINE SULFATE [Suspect]
     Active Substance: HYDROXYCHLOROQUINE SULFATE
     Dosage: 400 MG, QD, (1 EVERY 1 DAYS)
     Route: 065
  262. HYDROXYCHLOROQUINE SULFATE [Suspect]
     Active Substance: HYDROXYCHLOROQUINE SULFATE
     Route: 048
  263. HYDROXYCHLOROQUINE SULFATE [Suspect]
     Active Substance: HYDROXYCHLOROQUINE SULFATE
     Route: 016
  264. HYDROXYCHLOROQUINE SULFATE [Suspect]
     Active Substance: HYDROXYCHLOROQUINE SULFATE
     Dosage: 400 MG, QD, (1 EVERY 1 DAYS)
     Route: 065
  265. HYDROXYCHLOROQUINE SULFATE [Suspect]
     Active Substance: HYDROXYCHLOROQUINE SULFATE
     Route: 065
  266. HYDROXYCHLOROQUINE SULFATE [Suspect]
     Active Substance: HYDROXYCHLOROQUINE SULFATE
     Dosage: 400 MG, QD, (1 EVERY 1 DAYS)
     Route: 048
  267. HYDROXYCHLOROQUINE SULFATE [Suspect]
     Active Substance: HYDROXYCHLOROQUINE SULFATE
     Route: 048
  268. HYDROXYCHLOROQUINE SULFATE [Suspect]
     Active Substance: HYDROXYCHLOROQUINE SULFATE
     Dosage: UNK UNK, QD, (1 EVERY 1 DAYS)
     Route: 048
  269. HYDROXYCHLOROQUINE SULFATE [Suspect]
     Active Substance: HYDROXYCHLOROQUINE SULFATE
     Route: 065
  270. HYDROXYCHLOROQUINE SULFATE [Suspect]
     Active Substance: HYDROXYCHLOROQUINE SULFATE
     Route: 065
  271. HYDROXYCHLOROQUINE SULFATE [Suspect]
     Active Substance: HYDROXYCHLOROQUINE SULFATE
     Route: 065
  272. HYDROXYCHLOROQUINE SULFATE [Suspect]
     Active Substance: HYDROXYCHLOROQUINE SULFATE
     Route: 048
  273. HYDROXYCHLOROQUINE SULFATE [Suspect]
     Active Substance: HYDROXYCHLOROQUINE SULFATE
     Route: 048
  274. HYDROXYCHLOROQUINE SULFATE [Suspect]
     Active Substance: HYDROXYCHLOROQUINE SULFATE
     Route: 048
  275. HYDROXYCHLOROQUINE SULFATE [Suspect]
     Active Substance: HYDROXYCHLOROQUINE SULFATE
     Route: 048
  276. INFLIXIMAB [Suspect]
     Active Substance: INFLIXIMAB
     Indication: Rheumatoid arthritis
     Route: 065
  277. INFLIXIMAB [Suspect]
     Active Substance: INFLIXIMAB
     Route: 042
  278. INFLIXIMAB [Suspect]
     Active Substance: INFLIXIMAB
     Route: 042
  279. INFLIXIMAB [Suspect]
     Active Substance: INFLIXIMAB
     Route: 065
  280. INFLIXIMAB [Suspect]
     Active Substance: INFLIXIMAB
     Route: 065
  281. INFLIXIMAB [Suspect]
     Active Substance: INFLIXIMAB
     Route: 065
  282. INFLIXIMAB [Suspect]
     Active Substance: INFLIXIMAB
     Route: 065
  283. KEVZARA [Suspect]
     Active Substance: SARILUMAB
     Indication: Rheumatoid arthritis
     Route: 065
  284. KEVZARA [Suspect]
     Active Substance: SARILUMAB
     Route: 065
  285. LYRICA [Suspect]
     Active Substance: PREGABALIN
     Indication: Rheumatoid arthritis
     Route: 048
  286. METHOTREXATE [Suspect]
     Active Substance: METHOTREXATE
     Indication: Rheumatoid arthritis
     Route: 058
  287. METHOTREXATE [Suspect]
     Active Substance: METHOTREXATE
     Dosage: 20 MG, QD
     Route: 065
  288. METHOTREXATE [Suspect]
     Active Substance: METHOTREXATE
     Dosage: 25 MG, QD, (1 EVERY 1 DAYS)
     Route: 065
  289. METHOTREXATE [Suspect]
     Active Substance: METHOTREXATE
     Dosage: 20 MG, QD
     Route: 065
  290. METHOTREXATE [Suspect]
     Active Substance: METHOTREXATE
     Dosage: 25 MG, QW
     Route: 065
  291. METHOTREXATE [Suspect]
     Active Substance: METHOTREXATE
     Dosage: 15 MG, QD
     Route: 065
  292. METHOTREXATE [Suspect]
     Active Substance: METHOTREXATE
     Route: 065
  293. METHOTREXATE [Suspect]
     Active Substance: METHOTREXATE
     Dosage: 15 UNK, QW
     Route: 065
  294. METHOTREXATE [Suspect]
     Active Substance: METHOTREXATE
     Route: 065
  295. METHOTREXATE [Suspect]
     Active Substance: METHOTREXATE
     Route: 065
  296. METHOTREXATE [Suspect]
     Active Substance: METHOTREXATE
     Dosage: 25 MG, QD
     Route: 065
  297. METHOTREXATE [Suspect]
     Active Substance: METHOTREXATE
     Dosage: 2 G, QD
     Route: 065
  298. METHOTREXATE [Suspect]
     Active Substance: METHOTREXATE
     Dosage: 1 DOSAGE FORM, QD
     Route: 065
  299. METHOTREXATE [Suspect]
     Active Substance: METHOTREXATE
     Route: 048
  300. METHOTREXATE [Suspect]
     Active Substance: METHOTREXATE
     Dosage: 20 MG, QW, (1 EVERY 1)
     Route: 065
  301. METHOTREXATE [Suspect]
     Active Substance: METHOTREXATE
     Dosage: 25 MG, QD
     Route: 065
  302. METHOTREXATE [Suspect]
     Active Substance: METHOTREXATE
     Dosage: 20 MG, QD
     Route: 065
  303. METHOTREXATE [Suspect]
     Active Substance: METHOTREXATE
     Dosage: 20 MG, QW
     Route: 065
  304. METHOTREXATE [Suspect]
     Active Substance: METHOTREXATE
     Dosage: 2 G, QW
     Route: 065
  305. METHOTREXATE [Suspect]
     Active Substance: METHOTREXATE
     Dosage: 15 MG, QW
     Route: 065
  306. METHOTREXATE [Suspect]
     Active Substance: METHOTREXATE
     Dosage: 15 MG, QD
     Route: 065
  307. METHOTREXATE [Suspect]
     Active Substance: METHOTREXATE
     Route: 065
  308. METHOTREXATE [Suspect]
     Active Substance: METHOTREXATE
     Dosage: 25 MG, QW, (1 EVERY 1 WEEKS)
     Route: 058
  309. METHOTREXATE [Suspect]
     Active Substance: METHOTREXATE
     Dosage: 25 MG, QD
     Route: 065
  310. METHOTREXATE [Suspect]
     Active Substance: METHOTREXATE
     Dosage: 25 MG, QW, (1 EVERY 1 WEEKS)
     Route: 013
  311. METHOTREXATE [Suspect]
     Active Substance: METHOTREXATE
     Dosage: 25 MG, QW, (1 EVERY 1 WEEKS)
     Route: 051
  312. METHOTREXATE [Suspect]
     Active Substance: METHOTREXATE
     Dosage: 25 MG, QD, (1 EVERY 1 DAYS)
     Route: 048
  313. METHOTREXATE [Suspect]
     Active Substance: METHOTREXATE
     Dosage: 15 MG, QD, (1 EVERY 1 DAYS)
     Route: 058
  314. METHOTREXATE [Suspect]
     Active Substance: METHOTREXATE
     Route: 048
  315. METHOTREXATE [Suspect]
     Active Substance: METHOTREXATE
     Route: 051
  316. METHOTREXATE [Suspect]
     Active Substance: METHOTREXATE
     Dosage: 25 MG, QW, (1 EVERY 1 WEEKS, 11.0 YEARS)
     Route: 048
  317. METHOTREXATE [Suspect]
     Active Substance: METHOTREXATE
     Dosage: 25 MG, QD
     Route: 048
  318. METHOTREXATE [Suspect]
     Active Substance: METHOTREXATE
     Dosage: 20 MG, QD, (1 EVERY 1 DAYS)
     Route: 048
  319. METHOTREXATE [Suspect]
     Active Substance: METHOTREXATE
     Dosage: 20 MG, QW, (1 EVERY 1 WEEKS, 11.0 YEARS)
     Route: 058
  320. METHOTREXATE [Suspect]
     Active Substance: METHOTREXATE
     Dosage: 25 MG, QD, (1 EVERY 1 DAYS)
     Route: 013
  321. METHOTREXATE [Suspect]
     Active Substance: METHOTREXATE
     Route: 058
  322. METHOTREXATE [Suspect]
     Active Substance: METHOTREXATE
     Route: 058
  323. METHOTREXATE [Suspect]
     Active Substance: METHOTREXATE
     Route: 013
  324. METHOTREXATE [Suspect]
     Active Substance: METHOTREXATE
     Dosage: 15 MG, QD, (1 EVERY 1 WEEKS)
     Route: 013
  325. METHOTREXATE [Suspect]
     Active Substance: METHOTREXATE
     Route: 048
  326. METHOTREXATE [Suspect]
     Active Substance: METHOTREXATE
     Dosage: 25 MG, QD, (1 EVERY 1 DAYS)
     Route: 048
  327. METHOTREXATE [Suspect]
     Active Substance: METHOTREXATE
     Route: 065
  328. METHOTREXATE [Suspect]
     Active Substance: METHOTREXATE
     Dosage: 1 DOSAGE FORM, QD,  (1 EVERY 1 DAYS)
     Route: 048
  329. METHOTREXATE [Suspect]
     Active Substance: METHOTREXATE
     Dosage: 2 G, QD, (1 EVERY 1 DAYS)
     Route: 048
  330. METHOTREXATE [Suspect]
     Active Substance: METHOTREXATE
     Route: 048
  331. METHOTREXATE [Suspect]
     Active Substance: METHOTREXATE
     Route: 048
  332. METHOTREXATE [Suspect]
     Active Substance: METHOTREXATE
     Dosage: 2 G, QD, (1 EVERY 1 DAYS)
     Route: 048
  333. METHOTREXATE [Suspect]
     Active Substance: METHOTREXATE
     Dosage: 25 MG, QW, (1 EVERY 1 WEEKS)
     Route: 013
  334. METHOTREXATE [Suspect]
     Active Substance: METHOTREXATE
     Route: 048
  335. NAPROXEN [Suspect]
     Active Substance: NAPROXEN
     Indication: Product used for unknown indication
     Route: 065
  336. NAPROXEN SODIUM [Suspect]
     Active Substance: NAPROXEN SODIUM
     Indication: Rheumatoid arthritis
     Route: 065
  337. NAPROXEN SODIUM [Suspect]
     Active Substance: NAPROXEN SODIUM
     Dosage: 1 DOSAGE FORM, QD
     Route: 065
  338. NAPROXEN SODIUM [Suspect]
     Active Substance: NAPROXEN SODIUM
     Dosage: UNK, QD, (1 EVERY 1 DAYS)
     Route: 065
  339. ORENCIA [Suspect]
     Active Substance: ABATACEPT
     Indication: Rheumatoid arthritis
     Route: 042
  340. ORENCIA [Suspect]
     Active Substance: ABATACEPT
     Route: 058
  341. ORENCIA [Suspect]
     Active Substance: ABATACEPT
     Route: 042
  342. ORENCIA [Suspect]
     Active Substance: ABATACEPT
     Route: 048
  343. ORENCIA [Suspect]
     Active Substance: ABATACEPT
     Route: 042
  344. ORENCIA [Suspect]
     Active Substance: ABATACEPT
     Route: 042
  345. ORENCIA [Suspect]
     Active Substance: ABATACEPT
     Route: 042
  346. ORENCIA [Suspect]
     Active Substance: ABATACEPT
     Route: 042
  347. ORENCIA [Suspect]
     Active Substance: ABATACEPT
     Route: 042
  348. ORENCIA [Suspect]
     Active Substance: ABATACEPT
     Route: 042
  349. ORENCIA [Suspect]
     Active Substance: ABATACEPT
     Route: 042
  350. ORENCIA [Suspect]
     Active Substance: ABATACEPT
     Route: 042
  351. ORENCIA [Suspect]
     Active Substance: ABATACEPT
     Route: 042
  352. ORENCIA [Suspect]
     Active Substance: ABATACEPT
     Route: 058
  353. ORENCIA [Suspect]
     Active Substance: ABATACEPT
     Route: 058
  354. ORENCIA [Suspect]
     Active Substance: ABATACEPT
     Route: 058
  355. ORENCIA [Suspect]
     Active Substance: ABATACEPT
     Route: 058
  356. ORENCIA [Suspect]
     Active Substance: ABATACEPT
     Route: 058
  357. ORENCIA [Suspect]
     Active Substance: ABATACEPT
     Route: 058
  358. ORENCIA [Suspect]
     Active Substance: ABATACEPT
     Route: 058
  359. ORENCIA [Suspect]
     Active Substance: ABATACEPT
     Route: 058
  360. ORENCIA [Suspect]
     Active Substance: ABATACEPT
     Route: 065
  361. ORENCIA [Suspect]
     Active Substance: ABATACEPT
     Route: 065
  362. ORENCIA [Suspect]
     Active Substance: ABATACEPT
     Route: 065
  363. ORENCIA [Suspect]
     Active Substance: ABATACEPT
     Route: 065
  364. OTEZLA [Suspect]
     Active Substance: APREMILAST
     Indication: Product used for unknown indication
     Route: 065
  365. OTEZLA [Suspect]
     Active Substance: APREMILAST
     Dosage: 3 MG, BID (EVERY 0.5 DAY)
     Route: 048
  366. PHTHALYLSULFATHIAZOLE [Suspect]
     Active Substance: PHTHALYLSULFATHIAZOLE
     Indication: Rheumatoid arthritis
     Dosage: 1000 MG, BID (1EVERY 0.5DAY)
     Route: 065
  367. PHTHALYLSULFATHIAZOLE [Suspect]
     Active Substance: PHTHALYLSULFATHIAZOLE
     Route: 048
  368. PHTHALYLSULFATHIAZOLE [Suspect]
     Active Substance: PHTHALYLSULFATHIAZOLE
     Route: 016
  369. PHTHALYLSULFATHIAZOLE [Suspect]
     Active Substance: PHTHALYLSULFATHIAZOLE
     Route: 067
  370. PHTHALYLSULFATHIAZOLE [Suspect]
     Active Substance: PHTHALYLSULFATHIAZOLE
     Route: 058
  371. PHTHALYLSULFATHIAZOLE [Suspect]
     Active Substance: PHTHALYLSULFATHIAZOLE
     Route: 065
  372. PHTHALYLSULFATHIAZOLE [Suspect]
     Active Substance: PHTHALYLSULFATHIAZOLE
     Route: 065
  373. PHTHALYLSULFATHIAZOLE [Suspect]
     Active Substance: PHTHALYLSULFATHIAZOLE
     Route: 065
  374. PHTHALYLSULFATHIAZOLE [Suspect]
     Active Substance: PHTHALYLSULFATHIAZOLE
     Route: 058
  375. PHTHALYLSULFATHIAZOLE [Suspect]
     Active Substance: PHTHALYLSULFATHIAZOLE
     Route: 048
  376. PREDNISONE [Suspect]
     Active Substance: PREDNISONE
     Indication: Rheumatoid arthritis
     Route: 065
  377. PREDNISONE [Suspect]
     Active Substance: PREDNISONE
     Indication: Condition aggravated
     Route: 065
  378. PREDNISONE [Suspect]
     Active Substance: PREDNISONE
     Route: 065
  379. PREDNISONE [Suspect]
     Active Substance: PREDNISONE
     Route: 065
  380. PREDNISONE [Suspect]
     Active Substance: PREDNISONE
     Route: 065
  381. PREDNISONE [Suspect]
     Active Substance: PREDNISONE
     Route: 048
  382. PREDNISONE [Suspect]
     Active Substance: PREDNISONE
     Route: 065
  383. PREDNISONE [Suspect]
     Active Substance: PREDNISONE
     Route: 016
  384. PREDNISONE [Suspect]
     Active Substance: PREDNISONE
     Route: 067
  385. PREDNISONE [Suspect]
     Active Substance: PREDNISONE
     Route: 058
  386. PREDNISONE [Suspect]
     Active Substance: PREDNISONE
     Route: 065
  387. PREDNISONE [Suspect]
     Active Substance: PREDNISONE
     Route: 065
  388. PREDNISONE [Suspect]
     Active Substance: PREDNISONE
     Route: 048
  389. PREDNISONE [Suspect]
     Active Substance: PREDNISONE
     Route: 048
  390. PREDNISONE [Suspect]
     Active Substance: PREDNISONE
     Route: 048
  391. PREDNISONE [Suspect]
     Active Substance: PREDNISONE
     Route: 048
  392. PREDNISONE [Suspect]
     Active Substance: PREDNISONE
     Route: 065
  393. PSEUDOEPHEDRINE HYDROCHLORIDE [Suspect]
     Active Substance: PSEUDOEPHEDRINE HYDROCHLORIDE
     Indication: Rheumatoid arthritis
     Dosage: 25 MG, QD, (1 EVERY 1 DAYS)
     Route: 065
  394. PSEUDOEPHEDRINE HYDROCHLORIDE [Suspect]
     Active Substance: PSEUDOEPHEDRINE HYDROCHLORIDE
     Route: 065
  395. PSEUDOEPHEDRINE HYDROCHLORIDE [Suspect]
     Active Substance: PSEUDOEPHEDRINE HYDROCHLORIDE
     Route: 065
  396. PSEUDOEPHEDRINE HYDROCHLORIDE [Suspect]
     Active Substance: PSEUDOEPHEDRINE HYDROCHLORIDE
     Route: 065
  397. PSEUDOEPHEDRINE HYDROCHLORIDE AND TRIPROLIDINE HYDROCHLORIDE [Suspect]
     Active Substance: PSEUDOEPHEDRINE HYDROCHLORIDE\TRIPROLIDINE HYDROCHLORIDE
     Indication: Product used for unknown indication
     Route: 065
  398. CETIRIZINE HYDROCHLORIDE\PSEUDOEPHEDRINE HYDROCHLORIDE [Suspect]
     Active Substance: CETIRIZINE HYDROCHLORIDE\PSEUDOEPHEDRINE HYDROCHLORIDE
     Indication: Rheumatoid arthritis
     Dosage: 10 MG, QD, (1 EVERY 1 DAYS AND EXTENDED- RELEASE))
     Route: 065
  399. CETIRIZINE HYDROCHLORIDE\PSEUDOEPHEDRINE HYDROCHLORIDE [Suspect]
     Active Substance: CETIRIZINE HYDROCHLORIDE\PSEUDOEPHEDRINE HYDROCHLORIDE
     Dosage: 10 MG, QD, (1 EVERY 1 DAYS AND EXTENDED- RELEASE))
     Route: 065
  400. CETIRIZINE HYDROCHLORIDE\PSEUDOEPHEDRINE HYDROCHLORIDE [Suspect]
     Active Substance: CETIRIZINE HYDROCHLORIDE\PSEUDOEPHEDRINE HYDROCHLORIDE
     Route: 065
  401. CETIRIZINE HYDROCHLORIDE\PSEUDOEPHEDRINE HYDROCHLORIDE [Suspect]
     Active Substance: CETIRIZINE HYDROCHLORIDE\PSEUDOEPHEDRINE HYDROCHLORIDE
     Route: 065
  402. CETIRIZINE HYDROCHLORIDE\PSEUDOEPHEDRINE HYDROCHLORIDE [Suspect]
     Active Substance: CETIRIZINE HYDROCHLORIDE\PSEUDOEPHEDRINE HYDROCHLORIDE
     Route: 065
  403. CETIRIZINE HYDROCHLORIDE\PSEUDOEPHEDRINE HYDROCHLORIDE [Suspect]
     Active Substance: CETIRIZINE HYDROCHLORIDE\PSEUDOEPHEDRINE HYDROCHLORIDE
     Route: 065
  404. CETIRIZINE HYDROCHLORIDE\PSEUDOEPHEDRINE HYDROCHLORIDE [Suspect]
     Active Substance: CETIRIZINE HYDROCHLORIDE\PSEUDOEPHEDRINE HYDROCHLORIDE
     Route: 065
  405. CETIRIZINE HYDROCHLORIDE\PSEUDOEPHEDRINE HYDROCHLORIDE [Suspect]
     Active Substance: CETIRIZINE HYDROCHLORIDE\PSEUDOEPHEDRINE HYDROCHLORIDE
     Route: 065
  406. CETIRIZINE HYDROCHLORIDE [Suspect]
     Active Substance: CETIRIZINE HYDROCHLORIDE
     Indication: Rheumatoid arthritis
     Route: 065
  407. CETIRIZINE HYDROCHLORIDE [Suspect]
     Active Substance: CETIRIZINE HYDROCHLORIDE
     Route: 065
  408. CETIRIZINE HYDROCHLORIDE [Suspect]
     Active Substance: CETIRIZINE HYDROCHLORIDE
     Route: 065
  409. REMICADE [Suspect]
     Active Substance: INFLIXIMAB
     Indication: Rheumatoid arthritis
     Route: 065
  410. REMICADE [Suspect]
     Active Substance: INFLIXIMAB
     Route: 042
  411. REMICADE [Suspect]
     Active Substance: INFLIXIMAB
     Route: 042
  412. REMICADE [Suspect]
     Active Substance: INFLIXIMAB
     Route: 065
  413. SIMPONI [Suspect]
     Active Substance: GOLIMUMAB
     Indication: Rheumatoid arthritis
     Route: 065
  414. SIMPONI [Suspect]
     Active Substance: GOLIMUMAB
     Route: 065
  415. SIMPONI [Suspect]
     Active Substance: GOLIMUMAB
     Route: 058
  416. SIMPONI [Suspect]
     Active Substance: GOLIMUMAB
     Route: 058
  417. SIMPONI [Suspect]
     Active Substance: GOLIMUMAB
     Route: 058
  418. SIMPONI [Suspect]
     Active Substance: GOLIMUMAB
     Route: 058
  419. SIMPONI [Suspect]
     Active Substance: GOLIMUMAB
     Route: 058
  420. SIMPONI [Suspect]
     Active Substance: GOLIMUMAB
     Route: 058
  421. SIMPONI [Suspect]
     Active Substance: GOLIMUMAB
     Route: 058
  422. SOLU-MEDROL [Suspect]
     Active Substance: METHYLPREDNISOLONE SODIUM SUCCINATE
     Indication: Product used for unknown indication
     Route: 065
  423. STELARA [Suspect]
     Active Substance: USTEKINUMAB
     Indication: Product used for unknown indication
     Route: 058
  424. STELARA [Suspect]
     Active Substance: USTEKINUMAB
     Route: 065
  425. STELARA [Suspect]
     Active Substance: USTEKINUMAB
     Route: 058
  426. STELARA [Suspect]
     Active Substance: USTEKINUMAB
     Route: 058
  427. SULFASALAZINE [Suspect]
     Active Substance: SULFASALAZINE
     Indication: Rheumatoid arthritis
     Dosage: 2 G, QD, (1 EVERY 1 DAYS)
     Route: 065
  428. SULFASALAZINE [Suspect]
     Active Substance: SULFASALAZINE
     Indication: Psoriatic arthropathy
     Route: 065
  429. SULFASALAZINE [Suspect]
     Active Substance: SULFASALAZINE
     Dosage: 300 MG, QD
     Route: 065
  430. SULFASALAZINE [Suspect]
     Active Substance: SULFASALAZINE
     Route: 065
  431. SULFASALAZINE [Suspect]
     Active Substance: SULFASALAZINE
     Route: 048
  432. SULFASALAZINE [Suspect]
     Active Substance: SULFASALAZINE
     Dosage: 300 MG, QD
     Route: 065
  433. SULFASALAZINE [Suspect]
     Active Substance: SULFASALAZINE
     Dosage: 1 G, QD
     Route: 048
  434. SULFASALAZINE [Suspect]
     Active Substance: SULFASALAZINE
     Route: 048
  435. SULFASALAZINE [Suspect]
     Active Substance: SULFASALAZINE
     Route: 065
  436. SULFASALAZINE [Suspect]
     Active Substance: SULFASALAZINE
     Route: 065
  437. SULFASALAZINE [Suspect]
     Active Substance: SULFASALAZINE
     Route: 048
  438. SULFASALAZINE [Suspect]
     Active Substance: SULFASALAZINE
     Route: 048
  439. SULFASALAZINE [Suspect]
     Active Substance: SULFASALAZINE
     Route: 048
  440. SULFASALAZINE [Suspect]
     Active Substance: SULFASALAZINE
     Route: 048
  441. SULFASALAZINE [Suspect]
     Active Substance: SULFASALAZINE
     Route: 058
  442. SULFASALAZINE [Suspect]
     Active Substance: SULFASALAZINE
     Dosage: 2 G, QD
     Route: 048
  443. SULFASALAZINE [Suspect]
     Active Substance: SULFASALAZINE
     Dosage: 300 MG, QD
     Route: 048
  444. SULFASALAZINE [Suspect]
     Active Substance: SULFASALAZINE
     Dosage: 300 MG, QD
     Route: 065
  445. SULFASALAZINE [Suspect]
     Active Substance: SULFASALAZINE
     Route: 048
  446. SULFASALAZINE [Suspect]
     Active Substance: SULFASALAZINE
     Dosage: 2 G, QD
     Route: 048
  447. SULFASALAZINE [Suspect]
     Active Substance: SULFASALAZINE
     Route: 048
  448. SULFASALAZINE [Suspect]
     Active Substance: SULFASALAZINE
     Route: 048
  449. SULFASALAZINE [Suspect]
     Active Substance: SULFASALAZINE
     Dosage: 2 G, QD
     Route: 048
  450. SULFASALAZINE [Suspect]
     Active Substance: SULFASALAZINE
     Route: 065
  451. SULFASALAZINE [Suspect]
     Active Substance: SULFASALAZINE
     Route: 065
  452. SULFASALAZINE [Suspect]
     Active Substance: SULFASALAZINE
     Route: 065
  453. SULFASALAZINE [Suspect]
     Active Substance: SULFASALAZINE
     Route: 065
  454. SULFASALAZINE [Suspect]
     Active Substance: SULFASALAZINE
     Route: 048
  455. SULFASALAZINE [Suspect]
     Active Substance: SULFASALAZINE
     Route: 058
  456. SULFASALAZINE [Suspect]
     Active Substance: SULFASALAZINE
     Route: 065
  457. SULFASALAZINE [Suspect]
     Active Substance: SULFASALAZINE
     Route: 048
  458. SULFASALAZINE [Suspect]
     Active Substance: SULFASALAZINE
     Route: 048
  459. SULFASALAZINE [Suspect]
     Active Substance: SULFASALAZINE
     Route: 058
  460. SULFASALAZINE [Suspect]
     Active Substance: SULFASALAZINE
     Route: 048
  461. SULFASALAZINE [Suspect]
     Active Substance: SULFASALAZINE
     Route: 065
  462. SULFASALAZINE [Suspect]
     Active Substance: SULFASALAZINE
     Route: 048
  463. SULFASALAZINE [Suspect]
     Active Substance: SULFASALAZINE
     Route: 048
  464. SULFASALAZINE [Suspect]
     Active Substance: SULFASALAZINE
     Route: 065
  465. SULFASALAZINE [Suspect]
     Active Substance: SULFASALAZINE
     Route: 065
  466. SULFASALAZINE [Suspect]
     Active Substance: SULFASALAZINE
     Route: 065
  467. TOCILIZUMAB [Suspect]
     Active Substance: TOCILIZUMAB
     Indication: Rheumatoid arthritis
     Dosage: 5 MG, QD
     Route: 048
  468. TOCILIZUMAB [Suspect]
     Active Substance: TOCILIZUMAB
     Dosage: 5 MG, QW
     Route: 048
  469. TOCILIZUMAB [Suspect]
     Active Substance: TOCILIZUMAB
     Dosage: 5 MG, QD
     Route: 065
  470. TOCILIZUMAB [Suspect]
     Active Substance: TOCILIZUMAB
     Route: 058
  471. TOCILIZUMAB [Suspect]
     Active Substance: TOCILIZUMAB
     Route: 065
  472. TOCILIZUMAB [Suspect]
     Active Substance: TOCILIZUMAB
     Dosage: 5 MG, QD
     Route: 065
  473. TOFACITINIB [Suspect]
     Active Substance: TOFACITINIB
     Indication: Product used for unknown indication
     Dosage: 5 MG, QD
     Route: 065
  474. TOFACITINIB [Suspect]
     Active Substance: TOFACITINIB
     Dosage: 5 MG, QD
     Route: 048
  475. CALCIUM CARBONATE [Suspect]
     Active Substance: CALCIUM CARBONATE
     Indication: Product used for unknown indication
     Route: 065
  476. ACETAMINOPHEN AND CODEINE [Suspect]
     Active Substance: ACETAMINOPHEN\CODEINE PHOSPHATE
     Indication: Product used for unknown indication
     Route: 065
  477. ALENDRONATE SODIUM\CHOLECALCIFEROL [Suspect]
     Active Substance: ALENDRONATE SODIUM\CHOLECALCIFEROL
     Indication: Rheumatoid arthritis
     Route: 048
  478. ALENDRONIC ACID [Suspect]
     Active Substance: ALENDRONIC ACID
     Indication: Rheumatoid arthritis
     Route: 065
  479. ALENDRONIC ACID [Suspect]
     Active Substance: ALENDRONIC ACID
     Route: 048
  480. ALENDRONIC ACID [Suspect]
     Active Substance: ALENDRONIC ACID
     Route: 065
  481. ALENDRONIC ACID [Suspect]
     Active Substance: ALENDRONIC ACID
     Route: 048
  482. ALENDRONIC ACID [Suspect]
     Active Substance: ALENDRONIC ACID
     Route: 048
  483. ALENDRONIC ACID [Suspect]
     Active Substance: ALENDRONIC ACID
     Route: 048
  484. PANTOPRAZOLE SODIUM [Suspect]
     Active Substance: PANTOPRAZOLE SODIUM
     Indication: Product used for unknown indication
     Route: 065
  485. TOFACITINIB CITRATE [Suspect]
     Active Substance: TOFACITINIB CITRATE
     Indication: Rheumatoid arthritis
     Route: 065
  486. TOFACITINIB CITRATE [Suspect]
     Active Substance: TOFACITINIB CITRATE
     Route: 065
  487. TOFACITINIB CITRATE [Suspect]
     Active Substance: TOFACITINIB CITRATE
     Route: 065
  488. TRIPROLIDINE [Suspect]
     Active Substance: TRIPROLIDINE
     Indication: Product used for unknown indication
     Route: 065
  489. USTEKINUMAB [Suspect]
     Active Substance: USTEKINUMAB
     Indication: Product used for unknown indication
     Route: 042
  490. USTEKINUMAB [Suspect]
     Active Substance: USTEKINUMAB
     Route: 058
  491. USTEKINUMAB [Suspect]
     Active Substance: USTEKINUMAB
     Route: 065
  492. PREDNISONE [Suspect]
     Active Substance: PREDNISONE
     Indication: Rheumatoid arthritis
     Route: 048
  493. XELJANZ [Suspect]
     Active Substance: TOFACITINIB CITRATE
     Indication: Rheumatoid arthritis
     Route: 065
  494. XELJANZ [Suspect]
     Active Substance: TOFACITINIB CITRATE
     Dosage: 5 MG, QD
     Route: 048
  495. XELJANZ [Suspect]
     Active Substance: TOFACITINIB CITRATE
     Dosage: 5 MG, QW
     Route: 065
  496. XELJANZ [Suspect]
     Active Substance: TOFACITINIB CITRATE
     Route: 065
  497. XELJANZ [Suspect]
     Active Substance: TOFACITINIB CITRATE
     Route: 065
  498. XELJANZ [Suspect]
     Active Substance: TOFACITINIB CITRATE
     Route: 065
  499. XELJANZ [Suspect]
     Active Substance: TOFACITINIB CITRATE
     Route: 065
  500. XELJANZ [Suspect]
     Active Substance: TOFACITINIB CITRATE
     Route: 048
  501. XELJANZ [Suspect]
     Active Substance: TOFACITINIB CITRATE
     Route: 065
  502. XELJANZ [Suspect]
     Active Substance: TOFACITINIB CITRATE
     Dosage: 5 MG, QD
     Route: 048
  503. XELJANZ [Suspect]
     Active Substance: TOFACITINIB CITRATE
     Dosage: 5 MG, QD
     Route: 048
  504. TUMS ULTRA [Suspect]
     Active Substance: CALCIUM CARBONATE
     Indication: Product used for unknown indication
     Route: 065
  505. DICLOFENAC DIETHYLAMINE [Suspect]
     Active Substance: DICLOFENAC DIETHYLAMINE
     Indication: Product used for unknown indication
     Route: 065
  506. CETIRIZINE HYDROCHLORIDE\IBUPROFEN\PSEUDOEPHEDRINE HYDROCHLORIDE [Suspect]
     Active Substance: CETIRIZINE HYDROCHLORIDE\IBUPROFEN\PSEUDOEPHEDRINE HYDROCHLORIDE
     Indication: Rheumatoid arthritis
     Route: 048
  507. CETIRIZINE HYDROCHLORIDE\IBUPROFEN\PSEUDOEPHEDRINE HYDROCHLORIDE [Suspect]
     Active Substance: CETIRIZINE HYDROCHLORIDE\IBUPROFEN\PSEUDOEPHEDRINE HYDROCHLORIDE
     Route: 065
  508. CETIRIZINE HYDROCHLORIDE\IBUPROFEN\PSEUDOEPHEDRINE HYDROCHLORIDE [Suspect]
     Active Substance: CETIRIZINE HYDROCHLORIDE\IBUPROFEN\PSEUDOEPHEDRINE HYDROCHLORIDE
     Route: 065
  509. ACETAMINOPHEN [Concomitant]
     Active Substance: ACETAMINOPHEN
     Indication: Product used for unknown indication
     Route: 065
  510. ACETAMINOPHEN\CAFFEINE\CODEINE [Concomitant]
     Active Substance: ACETAMINOPHEN\CAFFEINE\CODEINE
     Indication: Product used for unknown indication
     Route: 065
  511. ACETAMINOPHEN\CAFFEINE [Concomitant]
     Active Substance: ACETAMINOPHEN\CAFFEINE
     Indication: Product used for unknown indication
     Route: 065
  512. CALCIUM [Concomitant]
     Active Substance: CALCIUM
     Indication: Product used for unknown indication
     Route: 065
  513. CALCIUM GLUCONATE [Concomitant]
     Active Substance: CALCIUM GLUCONATE
     Indication: Product used for unknown indication
     Route: 065
  514. CETIRIZINE [Concomitant]
     Active Substance: CETIRIZINE HYDROCHLORIDE
     Indication: Product used for unknown indication
     Route: 065
  515. CETIRIZINE HYDROCHLORIDE\IBUPROFEN\PSEUDOEPHEDRINE HYDROCHLORIDE [Concomitant]
     Active Substance: CETIRIZINE HYDROCHLORIDE\IBUPROFEN\PSEUDOEPHEDRINE HYDROCHLORIDE
     Indication: Rheumatoid arthritis
     Route: 065
  516. CHOLECALCIFEROL [Concomitant]
     Active Substance: CHOLECALCIFEROL
     Indication: Product used for unknown indication
     Route: 065
  517. MAGNESIUM [Concomitant]
     Active Substance: MAGNESIUM
     Indication: Product used for unknown indication
     Route: 065
  518. RAMIPRIL [Concomitant]
     Active Substance: RAMIPRIL
     Indication: Product used for unknown indication
     Route: 065
  519. RISEDRONATE SODIUM [Concomitant]
     Active Substance: RISEDRONATE SODIUM
     Indication: Product used for unknown indication
     Route: 065
  520. SULFASALAZINE [Concomitant]
     Active Substance: SULFASALAZINE
     Indication: Product used for unknown indication
     Route: 065
  521. ZESTRIL [Concomitant]
     Active Substance: LISINOPRIL
     Indication: Product used for unknown indication
     Route: 065
  522. CETIRIZINE HYDROCHLORIDE [Concomitant]
     Active Substance: CETIRIZINE HYDROCHLORIDE
     Indication: Product used for unknown indication
     Route: 065

REACTIONS (43)
  - Pericarditis [Fatal]
  - Product use issue [Fatal]
  - Psoriasis [Fatal]
  - Psoriatic arthropathy [Fatal]
  - Rash [Fatal]
  - Rheumatic fever [Fatal]
  - Rheumatoid arthritis [Fatal]
  - Rheumatoid factor positive [Fatal]
  - Sleep disorder [Fatal]
  - Swelling [Fatal]
  - Abdominal pain [Fatal]
  - Abdominal pain upper [Fatal]
  - Adjustment disorder with depressed mood [Fatal]
  - Adverse drug reaction [Fatal]
  - Adverse event [Fatal]
  - Alopecia [Fatal]
  - Amnesia [Fatal]
  - Anti-cyclic citrullinated peptide antibody positive [Fatal]
  - Anxiety [Fatal]
  - Arthralgia [Fatal]
  - Blister [Fatal]
  - Blood cholesterol increased [Fatal]
  - Chest pain [Fatal]
  - Delirium [Fatal]
  - Contraindicated product administered [Fatal]
  - Decreased appetite [Fatal]
  - Depression [Fatal]
  - Diarrhoea [Fatal]
  - Discomfort [Fatal]
  - Arthropathy [Fatal]
  - Dislocation of vertebra [Fatal]
  - Dizziness [Fatal]
  - Drug hypersensitivity [Fatal]
  - Drug intolerance [Fatal]
  - Duodenal ulcer perforation [Fatal]
  - Dyspnoea [Fatal]
  - Exposure during pregnancy [Fatal]
  - Fatigue [Fatal]
  - Therapeutic product effect decreased [Fatal]
  - Off label use [Fatal]
  - Product use in unapproved indication [Fatal]
  - Condition aggravated [Fatal]
  - Drug ineffective [Fatal]
